FAERS Safety Report 7805344 (Version 5)
Quarter: 2013Q2

REPORT INFORMATION
  Report Type: Spontaneous
  Country: GB (occurrence: GB)
  Receive Date: 20110209
  Receipt Date: 20130605
  Transmission Date: 20140414
  Serious: Yes (Hospitalization, Other)
  Sender: FDA-Public Use
  Company Number: PHFR2010GB06063

PATIENT
  Age: 25 Year
  Sex: Male

DRUGS (5)
  1. CLOZARIL [Suspect]
     Indication: SCHIZOPHRENIA
     Dosage: UNK
     Route: 048
     Dates: start: 20050610, end: 20101224
  2. CLOZARIL [Suspect]
     Dosage: UNK
     Route: 048
     Dates: start: 20111110
  3. SULPIRIDE [Concomitant]
     Dosage: 400 MG, QD
  4. HYOSCINE HYDROBROMIDE [Concomitant]
     Indication: SALIVARY HYPERSECRETION
     Dosage: 300 UG, QD
  5. OMACOR [Concomitant]
     Indication: SCHIZOPHRENIA
     Dosage: UNK

REACTIONS (6)
  - Psychotic disorder [Unknown]
  - Viral infection [Recovered/Resolved]
  - Neutropenia [Recovered/Resolved]
  - White blood cell count decreased [Recovered/Resolved]
  - Vomiting [Unknown]
  - Nasopharyngitis [Unknown]
